FAERS Safety Report 10229243 (Version 1)
Quarter: 2014Q2

REPORT INFORMATION
  Report Type: Spontaneous
  Country: US (occurrence: US)
  Receive Date: 20140611
  Receipt Date: 20140611
  Transmission Date: 20141212
  Serious: No
  Sender: FDA-Public Use
  Company Number: US-ASTRAZENECA-2014SE38308

PATIENT
  Age: 21 Year
  Sex: Male
  Weight: 74.8 kg

DRUGS (2)
  1. SEROQUEL XR [Suspect]
     Indication: BIPOLAR DISORDER
     Route: 048
  2. PAXIL [Concomitant]
     Dosage: UNKNOWN
     Route: 048

REACTIONS (2)
  - Weight increased [Unknown]
  - Lack of satiety [Unknown]
